FAERS Safety Report 7911713-9 (Version None)
Quarter: 2011Q4

REPORT INFORMATION
  Report Type: 
  Country: None (occurrence: None)
  Receive Date: 20111114
  Receipt Date: 20111005
  Transmission Date: 20120403
  Serious: Yes (Hospitalization)
  Sender: FDA-Public Use
  Company Number: GR-ROCHE-776841

PATIENT
  Sex: Male

DRUGS (8)
  1. MABTHERA [Suspect]
     Indication: RHEUMATOID ARTHRITIS
     Route: 065
     Dates: start: 20080902, end: 20110506
  2. PREDNISOLONE [Concomitant]
     Indication: RHEUMATOID ARTHRITIS
     Dosage: DOSE: 35/D.
  3. SIMVASTATIN [Concomitant]
  4. CARVEDILOL [Concomitant]
  5. PANTOPRAZOLE [Concomitant]
     Indication: RHEUMATOID ARTHRITIS
     Dosage: DOSE: 40/D.
  6. METHOTREXATE [Concomitant]
     Indication: RHEUMATOID ARTHRITIS
  7. FILICINE [Concomitant]
     Indication: RHEUMATOID ARTHRITIS
     Dosage: DOSE: 5 MG/W
  8. ASPIRIN [Concomitant]

REACTIONS (2)
  - BLOOD UREA INCREASED [None]
  - BLOOD CREATININE INCREASED [None]
